FAERS Safety Report 19115236 (Version 1)
Quarter: 2021Q2

REPORT INFORMATION
  Report Type: Spontaneous
  Country: CA (occurrence: CA)
  Receive Date: 20210409
  Receipt Date: 20210409
  Transmission Date: 20210717
  Serious: Yes (Other)
  Sender: FDA-Public Use
  Company Number: CA-BION-009638

PATIENT
  Age: 49 Year
  Sex: Female

DRUGS (3)
  1. AMANTADINE HYDROCHLORIDE. [Suspect]
     Active Substance: AMANTADINE HYDROCHLORIDE
     Indication: MULTIPLE SCLEROSIS
     Route: 048
     Dates: start: 2012
  2. NATALIZUMAB [Concomitant]
     Active Substance: NATALIZUMAB
     Route: 042
     Dates: start: 2017
  3. BOTULINUM TOXIN TYPE A [Concomitant]
     Active Substance: BOTULINUM TOXIN TYPE A
     Indication: MUSCLE SPASTICITY
     Dosage: EVERY 3 MONTHS
     Dates: start: 2013

REACTIONS (2)
  - Corneal decompensation [Recovering/Resolving]
  - Product use in unapproved indication [Not Recovered/Not Resolved]
